FAERS Safety Report 6327836-4 (Version None)
Quarter: 2009Q3

REPORT INFORMATION
  Report Type: 
  Country: None (occurrence: None)
  Receive Date: 20090824
  Receipt Date: 20090810
  Transmission Date: 20100115
  Serious: Yes (Hospitalization)
  Sender: FDA-Public Use
  Company Number: AUR-APL-2009-00378

PATIENT
  Age: 88 Year
  Sex: Male

DRUGS (5)
  1. GABAPENTIN [Suspect]
     Indication: PAIN IN EXTREMITY
     Dosage: 300MG - TID - ORAL
     Route: 048
     Dates: start: 20070322
  2. AMLODIPINE [Concomitant]
  3. ASPIRIN [Concomitant]
  4. BETAHISTINE [Concomitant]
  5. LACTULOSE [Concomitant]

REACTIONS (1)
  - FACIAL PARESIS [None]
